FAERS Safety Report 10195238 (Version 1)
Quarter: 2014Q2

REPORT INFORMATION
  Report Type: Spontaneous
  Country: US (occurrence: US)
  Receive Date: 20140526
  Receipt Date: 20140526
  Transmission Date: 20141212
  Serious: No
  Sender: FDA-Public Use
  Company Number: US-JNJFOC-20140513294

PATIENT
  Age: 71 Year
  Sex: Female
  Weight: 68.04 kg

DRUGS (4)
  1. INVEGA SUSTENNA [Suspect]
     Indication: SCHIZOPHRENIA
     Route: 030
     Dates: start: 20140514
  2. KLONOPIN [Concomitant]
     Route: 065
  3. DEPAKOTE [Concomitant]
     Route: 065
  4. ZOLOFT [Concomitant]
     Route: 065

REACTIONS (1)
  - Peripheral swelling [Unknown]
